FAERS Safety Report 7809714-4 (Version None)
Quarter: 2011Q4

REPORT INFORMATION
  Report Type: 
  Country: None (occurrence: None)
  Receive Date: 20111012
  Receipt Date: 20111011
  Transmission Date: 20120403
  Serious: Yes (Hospitalization)
  Sender: FDA-Public Use
  Company Number: US-GLAXOSMITHKLINE-B0752303A

PATIENT
  Age: 77 Year
  Sex: Male
  Weight: 105.5 kg

DRUGS (16)
  1. NORVASC [Concomitant]
  2. SKELAXIN [Concomitant]
  3. ACIPHEX [Concomitant]
  4. PLAVIX [Concomitant]
  5. SOMA [Concomitant]
  6. FUROSEMIDE [Concomitant]
  7. LIPITOR [Concomitant]
  8. ASPIRIN [Concomitant]
  9. JANUVIA [Concomitant]
  10. NORCO [Concomitant]
  11. GLYBURIDE [Concomitant]
  12. CLONAZEPAM [Concomitant]
  13. LASIX [Concomitant]
  14. LISINOPRIL [Concomitant]
  15. COREG [Concomitant]
  16. AVANDIA [Suspect]
     Indication: DIABETES MELLITUS
     Dosage: 8MG PER DAY
     Route: 048
     Dates: start: 20050715

REACTIONS (5)
  - INFECTION [None]
  - PNEUMONIA BACTERIAL [None]
  - LUNG DISORDER [None]
  - FLUID RETENTION [None]
  - CARDIAC FAILURE CONGESTIVE [None]
